FAERS Safety Report 11456485 (Version 1)
Quarter: 2015Q3

REPORT INFORMATION
  Report Type: Spontaneous
  Country: US (occurrence: US)
  Receive Date: 20150903
  Receipt Date: 20150903
  Transmission Date: 20151125
  Serious: Yes (Other)
  Sender: FDA-Public Use
  Company Number: US-TAKEDA-2014TUS002058

PATIENT

DRUGS (10)
  1. LEVEMIR [Concomitant]
     Active Substance: INSULIN DETEMIR
     Dosage: 40 IU, UNK
     Dates: start: 200706
  2. AMARYL [Concomitant]
     Active Substance: GLIMEPIRIDE
     Dosage: 8 MG, UNK
     Dates: start: 200111, end: 200502
  3. ACTOS [Suspect]
     Active Substance: PIOGLITAZONE HYDROCHLORIDE
     Indication: TYPE 2 DIABETES MELLITUS
     Dosage: 30 MG AND 45 MG
     Route: 048
     Dates: start: 200204, end: 200906
  4. METFORMIN [Concomitant]
     Active Substance: METFORMIN HYDROCHLORIDE
     Dosage: 1000 MG, UNK
  5. METAGLIP [Concomitant]
     Active Substance: GLIPIZIDE\METFORMIN HYDROCHLORIDE
     Indication: DIABETES MELLITUS
     Dosage: 10/1000MG
     Dates: start: 200503, end: 200511
  6. NOVOLOG [Concomitant]
     Active Substance: INSULIN ASPART
     Indication: DIABETES MELLITUS
     Dosage: 48 IU, UNK
     Dates: start: 200908, end: 201401
  7. GLIPIZIDE/METFORMIN [Concomitant]
     Active Substance: GLIPIZIDE\METFORMIN HYDROCHLORIDE
     Indication: DIABETES MELLITUS
     Dosage: 5/500-10/1000MG
     Dates: start: 200604
  8. HUMALOG [Concomitant]
     Active Substance: INSULIN LISPRO
     Dosage: 42 IU, UNK
     Dates: start: 201401
  9. GLUCOTROL [Concomitant]
     Active Substance: GLIPIZIDE
     Dosage: 20 MG, UNK
     Dates: start: 200201, end: 200301
  10. JANUVIA [Concomitant]
     Active Substance: SITAGLIPTIN PHOSPHATE
     Dosage: 100 MG, UNK
     Dates: start: 200511, end: 200704

REACTIONS (1)
  - Bladder cancer [Unknown]

NARRATIVE: CASE EVENT DATE: 20060503
